FAERS Safety Report 10365631 (Version 2)
Quarter: 2014Q3

REPORT INFORMATION
  Report Type: Spontaneous
  Country: US (occurrence: US)
  Receive Date: 20140806
  Receipt Date: 20140806
  Transmission Date: 20150326
  Serious: Yes (Other)
  Sender: FDA-Public Use
  Company Number: US-PFIZER INC-2013194216

PATIENT
  Age: 60 Year
  Sex: Female

DRUGS (15)
  1. ATENOLOL. [Suspect]
     Active Substance: ATENOLOL
     Indication: CARDIOVASCULAR DISORDER
  2. NEXIUM [Suspect]
     Active Substance: ESOMEPRAZOLE MAGNESIUM
     Indication: GASTROOESOPHAGEAL REFLUX PROPHYLAXIS
     Dosage: 40 MG, DAILY
     Route: 048
     Dates: start: 20140404, end: 20140412
  3. ASPIRIN. [Concomitant]
     Active Substance: ASPIRIN
     Indication: FAMILIAL RISK FACTOR
     Dosage: 325 MG EVERY 3 TO 6 DAYS PER WEEKS
     Route: 048
  4. VALIUM [Concomitant]
     Active Substance: DIAZEPAM
     Indication: ANXIETY
     Dosage: 1.5 MG, AS NEEDED
     Route: 048
     Dates: start: 1999
  5. TOPROL XL [Suspect]
     Active Substance: METOPROLOL SUCCINATE
     Indication: CARDIAC DISORDER
     Dosage: 12.5 MG, DAILY
     Route: 048
     Dates: start: 201305
  6. TOPROL XL [Suspect]
     Active Substance: METOPROLOL SUCCINATE
     Indication: CARDIOVASCULAR DISORDER
     Dosage: 12.5 MG, DAILY
     Route: 048
     Dates: start: 201002, end: 201010
  7. VALIUM [Concomitant]
     Active Substance: DIAZEPAM
     Indication: COSTOCHONDRITIS
     Dosage: 5 MG AS REQUIRED SPLIT INTO QUARTERS
  8. TOPROL XL [Suspect]
     Active Substance: METOPROLOL SUCCINATE
     Indication: ANGINA PECTORIS
     Dosage: 0.5 DF, ALTERNATE DAY
     Route: 048
     Dates: start: 20130625
  9. ATENOLOL. [Suspect]
     Active Substance: ATENOLOL
     Indication: ANGINA UNSTABLE
     Dosage: 25 MG, 1X/DAY
     Route: 048
     Dates: start: 20130524, end: 20130524
  10. TOPROL XL [Suspect]
     Active Substance: METOPROLOL SUCCINATE
     Indication: ISCHAEMIA
     Dosage: 12.5 MG, DAILY
     Route: 048
     Dates: start: 2013
  11. TOPROL XL [Suspect]
     Active Substance: METOPROLOL SUCCINATE
     Indication: HYPERTENSION
     Dosage: 12.5 MG, ALTERNATE DAY
     Route: 048
     Dates: end: 201407
  12. NEXIUM [Suspect]
     Active Substance: ESOMEPRAZOLE MAGNESIUM
     Indication: GASTROOESOPHAGEAL REFLUX DISEASE
     Dosage: 20 MG, DAILY
     Route: 048
     Dates: start: 20140404
  13. TOPROL XL [Suspect]
     Active Substance: METOPROLOL SUCCINATE
     Indication: ANGINA UNSTABLE
     Dosage: 0.5 DF, DAILY
     Route: 048
     Dates: start: 20130611, end: 20130623
  14. ASPIRIN. [Concomitant]
     Active Substance: ASPIRIN
     Dosage: 325 MG, DAILY
     Route: 048
     Dates: start: 201304
  15. ASPIRIN. [Concomitant]
     Active Substance: ASPIRIN
     Dosage: 325 MG, DAILY
     Route: 048
     Dates: start: 2010

REACTIONS (33)
  - Hearing impaired [Not Recovered/Not Resolved]
  - General physical health deterioration [Unknown]
  - Chest discomfort [Unknown]
  - Dyspnoea [Recovered/Resolved]
  - Hyperhidrosis [Unknown]
  - Hypoaesthesia [Not Recovered/Not Resolved]
  - Raynaud^s phenomenon [Not Recovered/Not Resolved]
  - Hypotension [Not Recovered/Not Resolved]
  - Vision blurred [Not Recovered/Not Resolved]
  - Arrhythmia [Not Recovered/Not Resolved]
  - Fatigue [Unknown]
  - Oedema peripheral [Unknown]
  - Malabsorption [Unknown]
  - Gastrointestinal sounds abnormal [Unknown]
  - Abdominal distension [Unknown]
  - Paraesthesia [Unknown]
  - Ventricular extrasystoles [Recovered/Resolved]
  - Flatulence [Not Recovered/Not Resolved]
  - Feeling abnormal [Unknown]
  - Flatulence [Unknown]
  - Hunger [Recovered/Resolved]
  - Gastrooesophageal reflux disease [Unknown]
  - Weight increased [Unknown]
  - Aphasia [Unknown]
  - Feeling abnormal [Not Recovered/Not Resolved]
  - Bowel movement irregularity [Unknown]
  - Dizziness [Not Recovered/Not Resolved]
  - Diarrhoea [Not Recovered/Not Resolved]
  - Supraventricular extrasystoles [Not Recovered/Not Resolved]
  - Cardiac discomfort [Unknown]
  - Food aversion [Unknown]
  - Memory impairment [Not Recovered/Not Resolved]
  - Nausea [Unknown]

NARRATIVE: CASE EVENT DATE: 20130524
